FAERS Safety Report 6427485-3 (Version None)
Quarter: 2009Q4

REPORT INFORMATION
  Report Type: 
  Country: None (occurrence: None)
  Receive Date: 20091104
  Receipt Date: 20091021
  Transmission Date: 20100525
  Serious: Yes (Hospitalization, Other)
  Sender: FDA-Public Use
  Company Number: PHEH2009US14352

PATIENT
  Age: 88 Year
  Sex: Female
  Weight: 70.748 kg

DRUGS (15)
  1. RECLAST [Suspect]
     Indication: OSTEOPOROSIS
     Dosage: 5 MG, ONCE/SINGLE
     Route: 042
     Dates: start: 20090317, end: 20090317
  2. VOLTAREN [Concomitant]
  3. CITALOPRAM HYDROBROMIDE [Concomitant]
  4. ALDACTONE [Concomitant]
  5. COUMADIN [Concomitant]
  6. COLACE [Concomitant]
  7. PEPCID [Concomitant]
  8. COREG [Concomitant]
  9. EPOGEN [Concomitant]
  10. PROTONIX [Concomitant]
  11. FOLIC ACID [Concomitant]
  12. LOVENOX [Concomitant]
  13. ALBUTEROL [Concomitant]
  14. VERAPAMIL [Concomitant]
  15. IRON SULFATETHIAMIN COMPOUND TAB [Concomitant]

REACTIONS (11)
  - ANAEMIA [None]
  - ARTHRALGIA [None]
  - ARTHRITIS [None]
  - CHRONIC OBSTRUCTIVE PULMONARY DISEASE [None]
  - DYSPNOEA [None]
  - FALL [None]
  - FEMUR FRACTURE [None]
  - OPEN REDUCTION OF FRACTURE [None]
  - URINARY TRACT INFECTION [None]
  - WHEEZING [None]
  - WOUND SECRETION [None]
